FAERS Safety Report 8186908-2 (Version None)
Quarter: 2012Q1

REPORT INFORMATION
  Report Type: 
  Country: None (occurrence: None)
  Receive Date: 20120306
  Receipt Date: 20120229
  Transmission Date: 20120608
  Serious: Yes (Other)
  Sender: FDA-Public Use
  Company Number: JP-PFIZER INC-2012053079

PATIENT
  Age: 49 Year
  Sex: Male

DRUGS (2)
  1. MICAFUNGIN [Concomitant]
     Indication: FUNGAL INFECTION
  2. VFEND [Suspect]
     Indication: FUNGAL INFECTION

REACTIONS (1)
  - FEBRILE NEUTROPENIA [None]
